FAERS Safety Report 6208770-7 (Version None)
Quarter: 2009Q2

REPORT INFORMATION
  Report Type: 
  Country: None (occurrence: None)
  Receive Date: 20090529
  Receipt Date: 20090521
  Transmission Date: 20091009
  Serious: Yes (Other)
  Sender: FDA-Public Use
  Company Number: GB-AVENTIS-200915280GDDC

PATIENT
  Age: 48 Year
  Sex: Male

DRUGS (5)
  1. NASACORT [Suspect]
     Route: 045
     Dates: start: 19980101, end: 19990101
  2. BECLOMETASONE DIPROPIONATE [Suspect]
     Dosage: DOSE: 2 SPRAYS
     Route: 045
  3. DEXA-RHINOSPRAY [Suspect]
     Dosage: DOSE: 2 SPRAYS
     Route: 045
     Dates: start: 19970101
  4. LOSARTAN POTASSIUM [Concomitant]
  5. AMITRIPTLINE HYDROCHLORIDE TAB [Concomitant]

REACTIONS (1)
  - OSTEONECROSIS [None]
